FAERS Safety Report 9494483 (Version 1)
Quarter: 2013Q3

REPORT INFORMATION
  Report Type: Spontaneous
  Country: US (occurrence: None)
  Receive Date: 20130830
  Receipt Date: 20130830
  Transmission Date: 20140515
  Serious: No
  Sender: FDA-Public Use
  Company Number: None

PATIENT
  Age: 48 Year
  Sex: Female
  Weight: 64.86 kg

DRUGS (6)
  1. SMZ/TMP DS 800-160 [Suspect]
     Indication: COUGH
     Dates: start: 20130702, end: 20130703
  2. SMZ/TMP DS 800-160 [Suspect]
     Indication: NASOPHARYNGITIS
     Dates: start: 20130702, end: 20130703
  3. SMZ/TMP DS 800-160 [Suspect]
     Indication: DYSPNOEA
     Dates: start: 20130702, end: 20130703
  4. IPATROPIUM BROMIDE [Concomitant]
  5. MUCINEX D [Concomitant]
  6. VIT D [Concomitant]

REACTIONS (1)
  - Drug hypersensitivity [None]
